FAERS Safety Report 24864229 (Version 2)
Quarter: 2025Q3

REPORT INFORMATION
  Report Type: Spontaneous
  Country: CO (occurrence: CO)
  Receive Date: 20250120
  Receipt Date: 20250803
  Transmission Date: 20251020
  Serious: Yes (Hospitalization)
  Sender: ALEXION PHARMACEUTICALS
  Company Number: CO-AstraZeneca-CH-00787290A

PATIENT
  Age: 76 Year
  Sex: Female
  Weight: 53 kg

DRUGS (1)
  1. TAGRISSO [Suspect]
     Active Substance: OSIMERTINIB
     Indication: Lung neoplasm malignant
     Dosage: 80 MILLIGRAM, QD
     Dates: start: 20241228

REACTIONS (2)
  - Vomiting [Recovering/Resolving]
  - Oesophageal wall hypertrophy [Recovering/Resolving]

NARRATIVE: CASE EVENT DATE: 20250113
